FAERS Safety Report 18897611 (Version 1)
Quarter: 2021Q1

REPORT INFORMATION
  Report Type: Spontaneous
  Country: US (occurrence: US)
  Receive Date: 20210214
  Receipt Date: 20210214
  Transmission Date: 20210420
  Serious: Yes (Other)
  Sender: FDA-Public Use
  Company Number: None

PATIENT
  Age: 33 Year
  Sex: Male
  Weight: 74.25 kg

DRUGS (1)
  1. KRATOM [Suspect]
     Active Substance: HERBALS\MITRAGYNINE
     Indication: VITAMIN SUPPLEMENTATION

REACTIONS (2)
  - Hyperhidrosis [None]
  - Palpitations [None]

NARRATIVE: CASE EVENT DATE: 20210213
